FAERS Safety Report 5341714-9 (Version None)
Quarter: 2007Q2

REPORT INFORMATION
  Report Type: 
  Country: None (occurrence: None)
  Receive Date: 20070529
  Receipt Date: 20070529
  Transmission Date: 20071010
  Serious: Yes (Hospitalization)
  Sender: FDA-Public Use
  Company Number: None

PATIENT
  Sex: Male

DRUGS (16)
  1. FLUDARABINE PHOSPHATE [Suspect]
     Indication: CHRONIC LYMPHOCYTIC LEUKAEMIA
     Dosage: 20MG/M2 IV X 3 DAYS Q28 DAYS
     Route: 042
     Dates: start: 20061024, end: 20070329
  2. CYCLOPHOSPHAMIDE [Suspect]
     Indication: CHRONIC LYMPHOCYTIC LEUKAEMIA
     Dosage: 150MG/M2 IV X 3 DAYS Q28 DAYS
     Route: 042
     Dates: start: 20061024, end: 20070329
  3. IMMUNE GLOBULIN INTRAVENOUS (HUMAN) [Concomitant]
  4. CAPOTEN [Concomitant]
  5. LOPRESSOR [Concomitant]
  6. BACTRIM DS [Concomitant]
  7. ACYCLOVIR [Concomitant]
  8. MULTI-VITAMIN [Concomitant]
  9. ASPIRIN [Concomitant]
  10. VIT C [Concomitant]
  11. VIT E [Concomitant]
  12. CHROMIUM [Concomitant]
  13. OSTEOBIOFLEX [Concomitant]
  14. GARLIC [Concomitant]
  15. NIACIN [Concomitant]
  16. FLAX OIL [Concomitant]

REACTIONS (3)
  - ANAEMIA [None]
  - DYSPNOEA [None]
  - FATIGUE [None]
